FAERS Safety Report 14942375 (Version 1)
Quarter: 2018Q2

REPORT INFORMATION
  Report Type: Spontaneous
  Country: FR (occurrence: FR)
  Receive Date: 20180528
  Receipt Date: 20180528
  Transmission Date: 20180711
  Serious: Yes (Other)
  Sender: FDA-Public Use
  Company Number: FR-MERCK KGAA-2048512

PATIENT
  Age: 60 Year
  Sex: Male

DRUGS (2)
  1. NOVOTHYROX [Suspect]
     Active Substance: LEVOTHYROXINE SODIUM
     Indication: THYROID DISORDER
     Dates: start: 2017
  2. NOVOTHYROX [Suspect]
     Active Substance: LEVOTHYROXINE SODIUM
     Dates: start: 20170601

REACTIONS (18)
  - Dyspnoea [None]
  - Irritability [Not Recovered/Not Resolved]
  - Insomnia [None]
  - Muscle spasms [Not Recovered/Not Resolved]
  - Myalgia [Not Recovered/Not Resolved]
  - Syncope [Not Recovered/Not Resolved]
  - Weight increased [Not Recovered/Not Resolved]
  - Alopecia [Not Recovered/Not Resolved]
  - Mood altered [None]
  - Major depression [None]
  - Malaise [None]
  - Fatigue [None]
  - Depression [None]
  - Decreased interest [None]
  - Asthenia [None]
  - Hypokinesia [None]
  - Tendonitis [None]
  - Blood albumin abnormal [None]

NARRATIVE: CASE EVENT DATE: 201705
